FAERS Safety Report 18608745 (Version 4)
Quarter: 2021Q2

REPORT INFORMATION
  Report Type: Spontaneous
  Country: JP (occurrence: JP)
  Receive Date: 20201213
  Receipt Date: 20210412
  Transmission Date: 20210717
  Serious: Yes (Hospitalization, Other)
  Sender: FDA-Public Use
  Company Number: JP-UCBSA-2020051107

PATIENT
  Age: 85 Year
  Sex: Female
  Weight: 46 kg

DRUGS (12)
  1. E KEPPRA [Suspect]
     Active Substance: LEVETIRACETAM
     Dosage: 500 MILLIGRAM, 3X/DAY (TID)
     Route: 048
     Dates: start: 20170520, end: 20170520
  2. MEROPENEM. [Concomitant]
     Active Substance: MEROPENEM
     Indication: MENINGITIS BACTERIAL
     Dosage: 3 GRAM, ONCE DAILY (QD)
     Route: 041
     Dates: start: 20170515, end: 20170517
  3. E KEPPRA [Suspect]
     Active Substance: LEVETIRACETAM
     Dosage: 2000 MG DAILY
     Route: 048
     Dates: start: 20170521, end: 20170607
  4. E KEPPRA [Suspect]
     Active Substance: LEVETIRACETAM
     Indication: EPILEPSY
     Dosage: 500 MILLIGRAM, 2X/DAY (BID)
     Route: 041
     Dates: start: 20170515, end: 20170517
  5. DECADRON [Concomitant]
     Active Substance: DEXAMETHASONE
     Indication: PRODUCT USED FOR UNKNOWN INDICATION
     Dosage: 26.4 MILLIGRAM, ONCE DAILY (QD)
     Route: 042
     Dates: start: 20170515, end: 20170520
  6. CERCINE [Concomitant]
     Active Substance: DIAZEPAM
     Dosage: 10 MILLIGRAM, ONCE DAILY (QD)
     Route: 042
     Dates: start: 20170520, end: 20170520
  7. E KEPPRA [Suspect]
     Active Substance: LEVETIRACETAM
     Dosage: 500 MILLIGRAM, 3X/DAY (TID)
     Route: 048
     Dates: start: 20170608, end: 20170608
  8. CERCINE [Concomitant]
     Active Substance: DIAZEPAM
     Indication: PRODUCT USED FOR UNKNOWN INDICATION
     Dosage: 15 MILLIGRAM, ONCE DAILY (QD)
     Route: 042
     Dates: start: 20170515, end: 20170515
  9. E KEPPRA [Suspect]
     Active Substance: LEVETIRACETAM
     Indication: EPILEPSY
     Dosage: 500 MILLIGRAM, 2X/DAY (BID)
     Route: 048
     Dates: start: 20170518, end: 20170519
  10. ZYVOX [Concomitant]
     Active Substance: LINEZOLID
     Indication: MENINGITIS BACTERIAL
     Dosage: 600 MILLIGRAM, ONCE DAILY (QD)
     Dates: start: 20170515, end: 20170515
  11. ZYVOX [Concomitant]
     Active Substance: LINEZOLID
     Dosage: 600 MILLIGRAM, 2X/DAY (BID)
     Route: 041
     Dates: start: 20170516, end: 20170516
  12. UNASYN [SULTAMICILLIN TOSILATE] [Concomitant]
     Active Substance: SULTAMICILLIN TOSYLATE
     Dosage: UNK
     Dates: start: 20170520

REACTIONS (5)
  - Renal failure [Recovered/Resolved]
  - General physical health deterioration [Unknown]
  - Off label use [Unknown]
  - Cholecystitis [Unknown]
  - Pneumonia [Unknown]

NARRATIVE: CASE EVENT DATE: 20170520
